FAERS Safety Report 25632991 (Version 1)
Quarter: 2025Q3

REPORT INFORMATION
  Report Type: Spontaneous
  Country: US (occurrence: None)
  Receive Date: 20250801
  Receipt Date: 20250801
  Transmission Date: 20251021
  Serious: No
  Sender: FDA-CTU
  Company Number: None

PATIENT
  Age: 54 Year
  Sex: Female

DRUGS (1)
  1. KISQALI [Suspect]
     Active Substance: RIBOCICLIB SUCCINATE
     Indication: Breast cancer
     Dosage: FREQUENCY : DAILY;?
     Route: 048
     Dates: start: 20250708, end: 20250722

REACTIONS (6)
  - Dyspnoea [None]
  - Cough [None]
  - Muscular weakness [None]
  - Peripheral swelling [None]
  - Rash [None]
  - Constipation [None]

NARRATIVE: CASE EVENT DATE: 20250722
